FAERS Safety Report 25521561 (Version 2)
Quarter: 2025Q3

REPORT INFORMATION
  Report Type: Spontaneous
  Country: EU (occurrence: EU)
  Receive Date: 20250706
  Receipt Date: 20250810
  Transmission Date: 20251020
  Serious: Yes (Other)
  Sender: ALEXION PHARMACEUTICALS
  Company Number: EU-ASTRAZENECA-202506GLO026338PL

PATIENT
  Age: 68 Year
  Sex: Male

DRUGS (2)
  1. DURVALUMAB [Suspect]
     Active Substance: DURVALUMAB
     Route: 065
  2. BCG VACCINE [Suspect]
     Active Substance: BCG VACCINE
     Route: 065

REACTIONS (2)
  - Disseminated tuberculosis [Unknown]
  - Treatment failure [Unknown]
